FAERS Safety Report 25533246 (Version 2)
Quarter: 2025Q3

REPORT INFORMATION
  Report Type: Spontaneous
  Country: JP (occurrence: JP)
  Receive Date: 20250709
  Receipt Date: 20250813
  Transmission Date: 20251020
  Serious: Yes (Hospitalization, Other)
  Sender: DAIICHI
  Company Number: JP-DSJP-DS-2025-145165-JP

PATIENT
  Age: 84 Year
  Sex: Female
  Weight: 41 kg

DRUGS (7)
  1. ENHERTU [Suspect]
     Active Substance: FAM-TRASTUZUMAB DERUXTECAN-NXKI
     Indication: HER2 positive gastric cancer
     Dosage: 6.4 MG/KG, ONCE EVERY 3 WK
     Route: 041
     Dates: start: 20250306, end: 20250306
  2. ENHERTU [Suspect]
     Active Substance: FAM-TRASTUZUMAB DERUXTECAN-NXKI
     Dosage: 6.4 MG/KG, ONCE EVERY 3 WK
     Route: 041
     Dates: start: 20250410, end: 20250410
  3. CAMOSTAT MESYLATE [Concomitant]
     Active Substance: CAMOSTAT MESYLATE
     Indication: Gastrooesophageal reflux disease
     Dosage: 100 MG, TID
     Route: 048
     Dates: start: 20210607
  4. DEXTROMETHORPHAN HYDROBROMIDE [Concomitant]
     Active Substance: DEXTROMETHORPHAN HYDROBROMIDE
     Indication: Upper respiratory tract inflammation
     Dosage: 15 MG, TID
     Route: 048
     Dates: start: 20250327, end: 20250403
  5. CARBOCYSTEINE [Concomitant]
     Active Substance: CARBOCYSTEINE
     Indication: Upper respiratory tract inflammation
     Dosage: 500 MG, TID
     Route: 048
     Dates: start: 20250327, end: 20250403
  6. MAGNESIUM OXIDE [Concomitant]
     Active Substance: MAGNESIUM OXIDE
     Indication: Constipation
     Dosage: 330 MG, QID
     Route: 048
     Dates: start: 20250410
  7. DECADRON [Concomitant]
     Active Substance: DEXAMETHASONE
     Indication: Malaise
     Dosage: 0.5 MG, QID
     Route: 048
     Dates: start: 20250410

REACTIONS (2)
  - Interstitial lung disease [Recovering/Resolving]
  - Cerebral infarction [Unknown]

NARRATIVE: CASE EVENT DATE: 20250101
